FAERS Safety Report 7400104-5 (Version None)
Quarter: 2011Q2

REPORT INFORMATION
  Report Type: 
  Country: None (occurrence: None)
  Receive Date: 20110407
  Receipt Date: 20110323
  Transmission Date: 20111010
  Serious: Yes (Other)
  Sender: FDA-Public Use
  Company Number: PHHY2011US23969

PATIENT
  Sex: Female

DRUGS (12)
  1. METAMUCIL-2 [Concomitant]
  2. QUASAR [Concomitant]
  3. FLORADAIL [Concomitant]
  4. POTASSIUM [Concomitant]
  5. RECLAST [Suspect]
     Dosage: 5 MG/100ML
     Route: 042
  6. SPIRIVA [Concomitant]
  7. ACETAMINOPHEN [Concomitant]
  8. PREDNISONE [Concomitant]
     Dosage: 10 MG
  9. PRILOSEC [Concomitant]
  10. PROAIR HFA [Concomitant]
  11. VITAMIN D [Concomitant]
  12. ZANTAC [Concomitant]

REACTIONS (9)
  - ERUCTATION [None]
  - INFLUENZA LIKE ILLNESS [None]
  - COMPRESSION FRACTURE [None]
  - DECREASED APPETITE [None]
  - OESOPHAGEAL DISORDER [None]
  - MOVEMENT DISORDER [None]
  - WEIGHT DECREASED [None]
  - DYSPNOEA [None]
  - NAUSEA [None]
